FAERS Safety Report 11686555 (Version 1)
Quarter: 2015Q4

REPORT INFORMATION
  Report Type: Report from Study
  Country: CA (occurrence: CA)
  Receive Date: 20151030
  Receipt Date: 20151030
  Transmission Date: 20160304
  Serious: Yes (Hospitalization, Other)
  Sender: FDA-Public Use
  Company Number: CA-AMGEN-CANSL2015112839

PATIENT
  Age: 86 Year
  Sex: Female

DRUGS (1)
  1. PROLIA [Suspect]
     Active Substance: DENOSUMAB
     Indication: PRODUCT USED FOR UNKNOWN INDICATION
     Dosage: UNK
     Route: 065

REACTIONS (6)
  - Terminal state [Unknown]
  - Dehydration [Unknown]
  - Pneumonia [Unknown]
  - Living in residential institution [Not Recovered/Not Resolved]
  - Clostridium difficile infection [Unknown]
  - Colon cancer [Unknown]

NARRATIVE: CASE EVENT DATE: 201504
